FAERS Safety Report 12230921 (Version 2)
Quarter: 2016Q2

REPORT INFORMATION
  Report Type: Spontaneous
  Country: HK (occurrence: HK)
  Receive Date: 20160401
  Receipt Date: 20160418
  Transmission Date: 20160815
  Serious: Yes (Death, Life-Threatening, Hospitalization, Other)
  Sender: FDA-Public Use
  Company Number: HK-ASTRAZENECA-2016SE33970

PATIENT
  Sex: Female
  Weight: 55 kg

DRUGS (2)
  1. TAGRISSO [Suspect]
     Active Substance: OSIMERTINIB
     Indication: LUNG NEOPLASM MALIGNANT
     Route: 048
     Dates: start: 20160303, end: 20160324
  2. PANADOL [Concomitant]
     Active Substance: ACETAMINOPHEN
     Indication: PAIN
     Route: 048
     Dates: start: 20160202, end: 20160326

REACTIONS (7)
  - Atrial fibrillation [Unknown]
  - Staphylococcal bacteraemia [Fatal]
  - Pneumonia [Fatal]
  - Non-small cell lung cancer stage IV [Unknown]
  - Lower respiratory tract infection [Fatal]
  - Respiratory acidosis [Unknown]
  - Respiratory failure [Unknown]

NARRATIVE: CASE EVENT DATE: 201603
